FAERS Safety Report 9499994 (Version 2)
Quarter: 2013Q3

REPORT INFORMATION
  Report Type: Spontaneous
  Country: JP (occurrence: JP)
  Receive Date: 20130905
  Receipt Date: 20130905
  Transmission Date: 20140515
  Serious: Yes (Death, Other)
  Sender: FDA-Public Use
  Company Number: JP-BAYER-201012282BYL

PATIENT
  Age: 49 Year
  Sex: Female

DRUGS (1)
  1. NEXAVAR [Suspect]
     Indication: RENAL CELL CARCINOMA
     Route: 048
     Dates: start: 20100405

REACTIONS (6)
  - Interstitial lung disease [None]
  - Metastatic renal cell carcinoma [Fatal]
  - Palmar-plantar erythrodysaesthesia syndrome [Recovering/Resolving]
  - Alopecia [Recovering/Resolving]
  - Hypertension [Recovering/Resolving]
  - Dysgeusia [None]
